FAERS Safety Report 12774773 (Version 1)
Quarter: 2016Q3

REPORT INFORMATION
  Report Type: Spontaneous
  Country: US (occurrence: US)
  Receive Date: 20160921
  Receipt Date: 20160921
  Transmission Date: 20161109
  Serious: No
  Sender: FDA-Public Use
  Company Number: None

PATIENT
  Age: 54 Year
  Sex: Female

DRUGS (1)
  1. HUMIRA [Suspect]
     Active Substance: ADALIMUMAB
     Indication: ANKYLOSING SPONDYLITIS
     Route: 030
     Dates: start: 20160222

REACTIONS (8)
  - Bone pain [None]
  - Bone swelling [None]
  - Epistaxis [None]
  - Swelling [None]
  - Neuropathy peripheral [None]
  - Head discomfort [None]
  - Pain [None]
  - Chondropathy [None]

NARRATIVE: CASE EVENT DATE: 20160913
